FAERS Safety Report 8262794-7 (Version None)
Quarter: 2012Q2

REPORT INFORMATION
  Report Type: 
  Country: None (occurrence: None)
  Receive Date: 20120405
  Receipt Date: 20120327
  Transmission Date: 20120825
  Serious: Yes (Congenital Anomaly, Other)
  Sender: FDA-Public Use
  Company Number: US-JNJFOC-20111205496

PATIENT

DRUGS (3)
  1. TOPAMAX [Suspect]
     Indication: FOETAL EXPOSURE DURING PREGNANCY
     Route: 064
  2. TOPAMAX [Suspect]
     Route: 064
  3. OMEPRAZOLE [Suspect]
     Indication: FOETAL EXPOSURE DURING PREGNANCY
     Route: 064

REACTIONS (8)
  - AUTOSOMAL CHROMOSOME ANOMALY [None]
  - LOW BIRTH WEIGHT BABY [None]
  - DEVELOPMENTAL DELAY [None]
  - CRANIOSYNOSTOSIS [None]
  - HEARING IMPAIRED [None]
  - CLEFT PALATE [None]
  - CLEFT LIP [None]
  - HYPOSPADIAS [None]
